FAERS Safety Report 7324085-8 (Version None)
Quarter: 2011Q1

REPORT INFORMATION
  Report Type: 
  Country: None (occurrence: None)
  Receive Date: 20110301
  Receipt Date: 20110221
  Transmission Date: 20110831
  Serious: Yes (Other)
  Sender: FDA-Public Use
  Company Number: US-B.I. PHARMACEUTICALS,INC./RIDGEFIELD-2011-BP-04751BP

PATIENT
  Sex: Female
  Weight: 90.72 kg

DRUGS (1)
  1. PRADAXA [Suspect]

REACTIONS (1)
  - ATRIAL FIBRILLATION [None]
